FAERS Safety Report 22206800 (Version 2)
Quarter: 2024Q2

REPORT INFORMATION
  Report Type: Spontaneous
  Country: US (occurrence: US)
  Receive Date: 20230413
  Receipt Date: 20240417
  Transmission Date: 20240716
  Serious: Yes (Other)
  Sender: FDA-Public Use
  Company Number: US-BRISTOL-MYERS SQUIBB COMPANY-2023-049715

PATIENT
  Age: 76 Year
  Sex: Female
  Weight: 63.5 kg

DRUGS (2)
  1. INREBIC [Suspect]
     Active Substance: FEDRATINIB HYDROCHLORIDE
     Indication: Bladder cancer
     Dosage: DAILY
     Route: 048
  2. INREBIC [Suspect]
     Active Substance: FEDRATINIB HYDROCHLORIDE
     Indication: Myelofibrosis

REACTIONS (3)
  - Breast disorder [Unknown]
  - Bladder disorder [Unknown]
  - Platelet disorder [Unknown]
